FAERS Safety Report 5653428-6 (Version None)
Quarter: 2008Q1

REPORT INFORMATION
  Report Type: 
  Country: None (occurrence: None)
  Receive Date: 20080306
  Receipt Date: 20080229
  Transmission Date: 20080703
  Serious: Yes (Other)
  Sender: FDA-Public Use
  Company Number: B0506905A

PATIENT
  Age: 6 Year
  Sex: Male
  Weight: 20.2 kg

DRUGS (4)
  1. RELENZA [Suspect]
     Indication: INFLUENZA
     Route: 055
     Dates: start: 20080122, end: 20080124
  2. PERIACTIN [Suspect]
     Indication: UPPER RESPIRATORY TRACT INFLAMMATION
     Dosage: 3.3ML THREE TIMES PER DAY
     Route: 048
     Dates: start: 20080124, end: 20080124
  3. ASVERIN [Concomitant]
     Route: 048
  4. MUCODYNE [Concomitant]
     Indication: UPPER RESPIRATORY TRACT INFLAMMATION
     Dosage: 3.3ML THREE TIMES PER DAY
     Route: 048
     Dates: start: 20080124, end: 20080124

REACTIONS (5)
  - DEPRESSED LEVEL OF CONSCIOUSNESS [None]
  - DIZZINESS [None]
  - EYE DISORDER [None]
  - GAIT DISTURBANCE [None]
  - LOSS OF CONSCIOUSNESS [None]
